FAERS Safety Report 9665933 (Version 1)
Quarter: 2013Q4

REPORT INFORMATION
  Report Type: Spontaneous
  Country: FR (occurrence: FR)
  Receive Date: 20131104
  Receipt Date: 20131104
  Transmission Date: 20140711
  Serious: Yes (Hospitalization)
  Sender: FDA-Public Use
  Company Number: FR-SA-2013SA108518

PATIENT
  Age: 1 Day
  Sex: Female
  Weight: 3.5 kg

DRUGS (7)
  1. CLOMID [Suspect]
     Indication: MATERNAL EXPOSURE TIMING UNSPECIFIED
     Route: 064
     Dates: start: 201003, end: 201009
  2. AMOXICILLIN [Suspect]
     Indication: MATERNAL EXPOSURE TIMING UNSPECIFIED
     Route: 064
     Dates: start: 2010, end: 2010
  3. DUPHASTON [Suspect]
     Indication: MATERNAL EXPOSURE TIMING UNSPECIFIED
     Dosage: STRENGTH: 10 MG
     Route: 064
     Dates: start: 201003, end: 201009
  4. SPASFON [Suspect]
     Indication: MATERNAL EXPOSURE TIMING UNSPECIFIED
     Route: 064
     Dates: start: 2010, end: 2010
  5. HUMALOG [Concomitant]
     Indication: GESTATIONAL DIABETES
     Route: 064
  6. TIMOFEROL [Concomitant]
     Route: 064
  7. MAGNE B6 [Concomitant]
     Dosage: STRENGTH: 48 MG/5 MG

REACTIONS (2)
  - Ureteric dilatation [Recovering/Resolving]
  - Foetal exposure during pregnancy [Unknown]
